FAERS Safety Report 11089088 (Version 2)
Quarter: 2015Q2

REPORT INFORMATION
  Report Type: Spontaneous
  Country: JP (occurrence: JP)
  Receive Date: 20150505
  Receipt Date: 20150626
  Transmission Date: 20150821
  Serious: Yes (Other)
  Sender: FDA-Public Use
  Company Number: JP-ROCHE-1538748

PATIENT
  Age: 88 Year
  Sex: Male

DRUGS (4)
  1. LUCENTIS [Suspect]
     Active Substance: RANIBIZUMAB
     Indication: AGE-RELATED MACULAR DEGENERATION
     Dosage: RIGHT EYE
     Route: 050
  2. LUCENTIS [Suspect]
     Active Substance: RANIBIZUMAB
     Indication: DETACHMENT OF RETINAL PIGMENT EPITHELIUM
  3. VISUDYNE [Suspect]
     Active Substance: VERTEPORFIN
     Indication: AGE-RELATED MACULAR DEGENERATION
     Route: 042
  4. VISUDYNE [Suspect]
     Active Substance: VERTEPORFIN
     Indication: DETACHMENT OF RETINAL PIGMENT EPITHELIUM

REACTIONS (2)
  - Retinal pigment epithelial tear [Unknown]
  - Visual acuity reduced [Unknown]
